FAERS Safety Report 6526090-8 (Version None)
Quarter: 2010Q1

REPORT INFORMATION
  Report Type: 
  Country: None (occurrence: None)
  Receive Date: 20100104
  Receipt Date: 20091231
  Transmission Date: 20100710
  Serious: Yes (Death)
  Sender: FDA-Public Use
  Company Number: CA-B.I. PHARMACEUTICALS,INC./RIDGEFIELD-2010-CN-00001CN

PATIENT

DRUGS (20)
  1. VIRAMUNE [Suspect]
     Route: 065
  2. 3TC [Suspect]
     Route: 065
  3. ACIDOPHILUS PLUS BIFIDUM, BULGARICUS AND CASEI [Suspect]
     Route: 065
  4. BETA CAROTENE [Suspect]
     Route: 065
  5. CHROMIUM [Suspect]
     Route: 065
  6. FOLIC ACID [Suspect]
     Route: 065
  7. GINKGO BILOBA [Suspect]
     Route: 065
  8. GLYCERIN [Suspect]
     Route: 065
  9. LECITHIN [Suspect]
     Route: 065
  10. MAGNESIUM [Suspect]
     Route: 065
  11. NIACIN [Suspect]
     Route: 065
  12. RETINOL [Suspect]
     Route: 065
  13. SELENIUM [Suspect]
     Route: 065
  14. SENNA [Suspect]
     Route: 065
  15. VIDEX [Suspect]
     Route: 065
  16. VITAMIN B-12 [Suspect]
     Route: 065
  17. VITAMIN B COMPLEX CAP [Suspect]
     Route: 065
  18. VITAMIN C [Suspect]
     Route: 065
  19. VITAMIN E [Suspect]
     Route: 065
  20. ZERIT [Suspect]
     Route: 065

REACTIONS (8)
  - ACUTE HEPATIC FAILURE [None]
  - ASCITES [None]
  - DRUG INTERACTION [None]
  - DRUG RESISTANCE [None]
  - DYSPEPSIA [None]
  - HEPATITIS [None]
  - JAUNDICE [None]
  - VOMITING [None]
